FAERS Safety Report 5897709-X (Version None)
Quarter: 2008Q3

REPORT INFORMATION
  Report Type: 
  Country: None (occurrence: None)
  Receive Date: 20080924
  Receipt Date: 20080924
  Transmission Date: 20090109
  Serious: Yes (Other)
  Sender: FDA-Public Use
  Company Number: None

PATIENT
  Age: 55 Year
  Sex: Female
  Weight: 65.318 kg

DRUGS (2)
  1. FOSAMAX [Suspect]
     Indication: OSTEOPENIA
     Dosage: 1 PER WEEK PO
     Route: 048
     Dates: start: 20040501, end: 20071101
  2. ACTONEL [Suspect]
     Dosage: 75 MG 2 X PER MONTH PO
     Route: 048
     Dates: start: 20071130, end: 20080921

REACTIONS (9)
  - ARTHRALGIA [None]
  - FIBROMYALGIA [None]
  - GASTROOESOPHAGEAL REFLUX DISEASE [None]
  - LYMPHADENOPATHY [None]
  - MYALGIA [None]
  - PLANTAR FASCIITIS [None]
  - POOR QUALITY SLEEP [None]
  - RESTLESS LEGS SYNDROME [None]
  - URINARY TRACT INFECTION [None]
